FAERS Safety Report 7388995-8 (Version None)
Quarter: 2011Q2

REPORT INFORMATION
  Report Type: 
  Country: None (occurrence: None)
  Receive Date: 20110401
  Receipt Date: 20110313
  Transmission Date: 20111010
  Serious: No
  Sender: FDA-Public Use
  Company Number: US-B.I. PHARMACEUTICALS,INC./RIDGEFIELD-2011-BP-07956BP

PATIENT
  Sex: Female

DRUGS (17)
  1. CORAL CALCIUM [Concomitant]
     Indication: SUPPLEMENTATION THERAPY
     Dosage: 1000 MG
  2. PRADAXA [Suspect]
     Indication: ATRIAL FIBRILLATION
     Dosage: 300 MG
     Route: 048
     Dates: start: 20110313
  3. ASPIRIN [Concomitant]
     Indication: HYPERTENSION
     Dosage: 81 MG
  4. PANTOPRAZOLE [Concomitant]
     Indication: GASTROOESOPHAGEAL REFLUX DISEASE
     Dosage: 40 MG
  5. CINNAMON [Concomitant]
     Indication: BLOOD GLUCOSE ABNORMAL
     Dosage: 1000 MG
  6. COQ10 [Concomitant]
     Indication: SUPPLEMENTATION THERAPY
     Dosage: 100 MG
  7. LOVAZA [Concomitant]
     Indication: BLOOD TRIGLYCERIDES
     Dosage: 400 MG
  8. VITAMIN D [Concomitant]
     Indication: SUPPLEMENTATION THERAPY
     Dosage: 2000 U
  9. CRESTOR [Concomitant]
     Indication: BLOOD CHOLESTEROL
     Dosage: 5 MG
  10. METOPROLOL [Concomitant]
     Indication: HYPERTENSION
     Dosage: 100 MG
  11. WOMENS ONE A DAY [Concomitant]
     Indication: SUPPLEMENTATION THERAPY
     Dosage: 1 QD
  12. PLAVIX [Concomitant]
     Indication: ANTICOAGULANT THERAPY
     Dosage: 75 MG
  13. COZAAR [Concomitant]
     Indication: HYPERTENSION
     Dosage: 50 MG
  14. VITAMIN B-12 [Concomitant]
     Indication: SUPPLEMENTATION THERAPY
     Dosage: 1000 MG
  15. MAGNESIUM [Concomitant]
     Indication: SUPPLEMENTATION THERAPY
     Dosage: 250 MG
  16. POTASSIUM [Concomitant]
     Indication: SUPPLEMENTATION THERAPY
  17. FOLIC ACID [Concomitant]
     Indication: SUPPLEMENTATION THERAPY
     Dosage: 800 MG

REACTIONS (2)
  - INSOMNIA [None]
  - ABDOMINAL DISCOMFORT [None]
